FAERS Safety Report 20141600 (Version 1)
Quarter: 2021Q4

REPORT INFORMATION
  Report Type: Spontaneous
  Country: US (occurrence: None)
  Receive Date: 20211202
  Receipt Date: 20211202
  Transmission Date: 20220303
  Serious: No
  Sender: FDA-Public Use
  Company Number: None

PATIENT
  Age: 3 Year
  Sex: Female
  Weight: 14.85 kg

DRUGS (2)
  1. MIRALAX [Suspect]
     Active Substance: POLYETHYLENE GLYCOL 3350
     Indication: Constipation
     Dates: start: 20210801, end: 20211129
  2. LIQUID GLYCERIN SUPPOSITORIES [Concomitant]

REACTIONS (4)
  - Abnormal behaviour [None]
  - Aggression [None]
  - Agitation [None]
  - Anger [None]

NARRATIVE: CASE EVENT DATE: 20211201
